FAERS Safety Report 6190818-X (Version None)
Quarter: 2009Q2

REPORT INFORMATION
  Report Type: 
  Country: None (occurrence: None)
  Receive Date: 20090514
  Receipt Date: 20090507
  Transmission Date: 20091009
  Serious: Yes (Other)
  Sender: FDA-Public Use
  Company Number: PHEH2006US11382

PATIENT
  Sex: Female

DRUGS (6)
  1. ZOMETA [Suspect]
     Indication: LEIOMYOSARCOMA
     Dosage: UNK
     Dates: start: 20050101
  2. TIAZAC [Concomitant]
  3. DIOVAN [Concomitant]
  4. FEMARA [Concomitant]
  5. CHEMOTHERAPEUTICS NOS [Suspect]
  6. RADIATION [Concomitant]

REACTIONS (16)
  - ANXIETY [None]
  - BONE DEBRIDEMENT [None]
  - BONE DISORDER [None]
  - CELLULITIS [None]
  - DECREASED INTEREST [None]
  - DEFORMITY [None]
  - DYSPEPSIA [None]
  - EMOTIONAL DISTRESS [None]
  - GENERAL PHYSICAL HEALTH DETERIORATION [None]
  - HYPOPHAGIA [None]
  - LIFE EXPECTANCY SHORTENED [None]
  - OSTEONECROSIS [None]
  - PAIN [None]
  - SINUSITIS [None]
  - TOOTH EXTRACTION [None]
  - TOOTH INFECTION [None]
